FAERS Safety Report 18036268 (Version 1)
Quarter: 2020Q3

REPORT INFORMATION
  Report Type: Spontaneous
  Country: US (occurrence: US)
  Receive Date: 20200716
  Receipt Date: 20200716
  Transmission Date: 20201103
  Serious: No
  Sender: FDA-Public Use
  Company Number: None

PATIENT
  Age: 72 Year
  Sex: Male

DRUGS (1)
  1. EDOXABAN (EDOXABAN 60MG TAB) [Suspect]
     Active Substance: EDOXABAN
     Indication: ATRIAL FIBRILLATION
     Dates: start: 20171026, end: 20180919

REACTIONS (1)
  - Constipation [None]

NARRATIVE: CASE EVENT DATE: 20180919
